FAERS Safety Report 8789545 (Version 1)
Quarter: 2012Q4

REPORT INFORMATION
  Report Type: Spontaneous
  Country: US (occurrence: None)
  Receive Date: 20120910
  Receipt Date: 20120910
  Transmission Date: 20130627
  Serious: Yes (Hospitalization)
  Sender: FDA-Public Use
  Company Number: None

PATIENT
  Age: 33 Year
  Sex: Female
  Weight: 61.69 kg

DRUGS (1)
  1. SUMATRIPTAN SUCCINATE [Suspect]
     Indication: MIGRAINE
     Dosage: as needed
     Route: 048
     Dates: start: 20120905, end: 20120905

REACTIONS (5)
  - Convulsion [None]
  - Hypoaesthesia [None]
  - Confusional state [None]
  - Loss of consciousness [None]
  - Skin discolouration [None]
